FAERS Safety Report 18243866 (Version 21)
Quarter: 2023Q4

REPORT INFORMATION
  Report Type: Report from Study
  Country: CR (occurrence: CR)
  Receive Date: 20200908
  Receipt Date: 20231102
  Transmission Date: 20240110
  Serious: Yes (Hospitalization, Other)
  Sender: FDA-Public Use
  Company Number: NVSC2020CR206249

PATIENT
  Sex: Female
  Weight: 75 kg

DRUGS (16)
  1. KISQALI [Suspect]
     Active Substance: RIBOCICLIB
     Indication: Breast cancer
     Dosage: 600 MG, QD
     Route: 048
     Dates: start: 2019
  2. KISQALI [Suspect]
     Active Substance: RIBOCICLIB
     Dosage: 600 MG, QD
     Route: 048
     Dates: start: 20200204
  3. KISQALI [Suspect]
     Active Substance: RIBOCICLIB
     Dosage: 600 MG, QD
     Route: 048
     Dates: start: 20200214
  4. KISQALI [Suspect]
     Active Substance: RIBOCICLIB
     Dosage: 600 MG, QD
     Route: 048
     Dates: start: 20200501
  5. KISQALI [Suspect]
     Active Substance: RIBOCICLIB
     Dosage: 200 MG, QD (DAILY IN THE MORNING)
     Route: 048
     Dates: start: 20200521
  6. KISQALI [Suspect]
     Active Substance: RIBOCICLIB
     Dosage: 200 MG
     Route: 065
     Dates: start: 20200525
  7. KISQALI [Suspect]
     Active Substance: RIBOCICLIB
     Dosage: 200 MG, QD (AT MIDDAY)
     Route: 065
  8. KISQALI [Suspect]
     Active Substance: RIBOCICLIB
     Dosage: 600 MG, QD
     Route: 048
  9. FULVESTRANT [Suspect]
     Active Substance: FULVESTRANT
     Indication: Breast cancer metastatic
     Dosage: UNK UNK, QMO ( EVERY MONTH)
     Route: 048
     Dates: start: 20200521
  10. FULVESTRANT [Suspect]
     Active Substance: FULVESTRANT
     Indication: Furuncle
  11. TABCIN [Suspect]
     Active Substance: ASPIRIN\CHLORPHENIRAMINE MALEATE\PHENYLEPHRINE BITARTRATE
     Indication: Product used for unknown indication
     Dosage: UNK
     Route: 065
  12. HYDROXYZINE [Suspect]
     Active Substance: HYDROXYZINE HYDROCHLORIDE
     Indication: Anxiety
     Dosage: 25 MG, QD
     Route: 048
     Dates: start: 2015
  13. CLONAZEPAM [Suspect]
     Active Substance: CLONAZEPAM
     Indication: Anxiety
     Dosage: UNK
     Route: 048
     Dates: start: 2015
  14. VENLAFAXINE [Concomitant]
     Active Substance: VENLAFAXINE HYDROCHLORIDE
     Indication: Anxiety
     Dosage: 150 MG, QD
     Route: 048
     Dates: start: 2015
  15. DELAFLOXACIN [Concomitant]
     Active Substance: DELAFLOXACIN
     Indication: Product used for unknown indication
     Dosage: UNK
     Route: 065
  16. DIAZEPAM [Concomitant]
     Active Substance: DIAZEPAM
     Indication: Product used for unknown indication
     Dosage: UNK
     Route: 065

REACTIONS (60)
  - Gastroenteritis viral [Recovering/Resolving]
  - Pyrexia [Recovering/Resolving]
  - Neutropenia [Recovering/Resolving]
  - Anaemia [Recovering/Resolving]
  - Vomiting [Recovering/Resolving]
  - Diarrhoea [Recovering/Resolving]
  - Fatigue [Recovering/Resolving]
  - Infarction [Unknown]
  - Hypoxia [Unknown]
  - Choking [Unknown]
  - Gastric ulcer [Unknown]
  - Asphyxia [Unknown]
  - Vomiting [Unknown]
  - Fatigue [Unknown]
  - Stress [Unknown]
  - Gastrooesophageal reflux disease [Unknown]
  - Condition aggravated [Unknown]
  - Hepatic steatosis [Unknown]
  - Lung disorder [Unknown]
  - Cardiac disorder [Unknown]
  - Hyperchlorhydria [Unknown]
  - Amnesia [Unknown]
  - Dyspepsia [Unknown]
  - Abdominal discomfort [Not Recovered/Not Resolved]
  - Diarrhoea [Unknown]
  - Oropharyngeal discomfort [Not Recovered/Not Resolved]
  - Insomnia [Unknown]
  - Hernia [Unknown]
  - Weight increased [Unknown]
  - Skin fissures [Unknown]
  - Skin haemorrhage [Unknown]
  - Thyroid disorder [Unknown]
  - Gait disturbance [Unknown]
  - Sleep paralysis [Unknown]
  - Somnolence [Unknown]
  - Secretion discharge [Unknown]
  - Illness [Unknown]
  - Peripheral swelling [Unknown]
  - Dry skin [Not Recovered/Not Resolved]
  - Nasopharyngitis [Unknown]
  - Pruritus [Unknown]
  - Injection site mass [Unknown]
  - Dizziness [Unknown]
  - Cough [Unknown]
  - Headache [Unknown]
  - Eating disorder [Unknown]
  - Skin exfoliation [Unknown]
  - Hiatus hernia [Unknown]
  - Varicose vein [Unknown]
  - Arthralgia [Unknown]
  - Pain [Unknown]
  - Discomfort [Unknown]
  - Malaise [Unknown]
  - Skin atrophy [Unknown]
  - Gastritis [Unknown]
  - Pain in extremity [Unknown]
  - Hyperhidrosis [Unknown]
  - Nausea [Unknown]
  - Product dose omission issue [Unknown]
  - Product availability issue [Unknown]

NARRATIVE: CASE EVENT DATE: 20190101
